FAERS Safety Report 5343880-8 (Version None)
Quarter: 2007Q2

REPORT INFORMATION
  Report Type: 
  Country: None (occurrence: None)
  Receive Date: 20070531
  Receipt Date: 20070531
  Transmission Date: 20071010
  Serious: Yes (Death, Life-Threatening, Hospitalization)
  Sender: FDA-Public Use
  Company Number: None

PATIENT
  Age: 59 Year
  Sex: Male
  Weight: 96.1626 kg

DRUGS (1)
  1. HEPARIN [Suspect]
     Indication: MYOCARDIAL INFARCTION
     Dates: start: 20051204, end: 20051204

REACTIONS (2)
  - CEREBRAL HAEMORRHAGE [None]
  - MYOCARDIAL INFARCTION [None]
